FAERS Safety Report 7588323-9 (Version None)
Quarter: 2011Q3

REPORT INFORMATION
  Report Type: 
  Country: None (occurrence: None)
  Receive Date: 20110705
  Receipt Date: 20101209
  Transmission Date: 20111222
  Serious: Yes (Death, Hospitalization, Other)
  Sender: FDA-Public Use
  Company Number: US-BAYER-200940385NA

PATIENT
  Age: 56 Year
  Sex: Female
  Weight: 58.957 kg

DRUGS (23)
  1. LIPITOR [Concomitant]
     Dosage: 20 MG, UNK
     Route: 048
     Dates: start: 19990101
  2. TRASYLOL [Suspect]
     Dosage: 25ML/HR INFUSION
     Route: 042
     Dates: start: 20050505, end: 20050505
  3. FLUCONAZOLE [Concomitant]
     Dosage: 50 MG, QD
  4. FLAGYL [Concomitant]
     Dosage: 500 MG, TID
     Dates: end: 20050201
  5. VANCOMYCIN [Concomitant]
     Indication: SEPSIS
  6. COUMADIN [Concomitant]
     Route: 048
  7. CATAPRES [Concomitant]
     Indication: HYPERTENSION
     Route: 048
  8. FENTANYL [Concomitant]
     Dosage: UNK
     Route: 042
     Dates: start: 20050505, end: 20050505
  9. PHENYLEPHRINE HCL [Concomitant]
     Dosage: UNK
     Route: 042
     Dates: start: 20050505, end: 20050505
  10. EPOGEN [Concomitant]
     Dosage: 5000 UNITS TWICE A WEEK
  11. ROCEPHIN [Concomitant]
     Dosage: UNK
     Route: 042
     Dates: start: 20050504, end: 20050505
  12. NIMBEX [Concomitant]
     Dosage: UNK
     Route: 042
     Dates: start: 20050505, end: 20050505
  13. PROPOFOL [Concomitant]
     Dosage: UNK
     Route: 042
     Dates: start: 20050505, end: 20050505
  14. ROCALTROL [Concomitant]
     Dosage: 0.5 MG, QD
  15. AZTREONAM [Concomitant]
     Indication: BACTERIAL DISEASE CARRIER
     Dosage: UNK
     Dates: end: 20050401
  16. INSULIN HUMAN [Concomitant]
     Dosage: 40 U
     Route: 042
     Dates: start: 20050505, end: 20050505
  17. PROTONIX [Concomitant]
     Dosage: 40 MG, QD
  18. MIDAZOLAM HCL [Concomitant]
     Dosage: UNK
     Route: 042
     Dates: start: 20050505, end: 20050505
  19. TRASYLOL [Suspect]
     Indication: CORONARY ARTERY BYPASS
     Dosage: UNK, TEST DOSE
     Route: 042
     Dates: start: 20050505, end: 20050505
  20. RENAGEL [Concomitant]
     Dosage: 800 MG 3 TABLETS THREE TIMES DAILY
  21. CLINDAMYCIN [Concomitant]
     Indication: BACTERIAL DISEASE CARRIER
     Dosage: UNK
     Dates: end: 20050401
  22. VANCOMYCIN [Concomitant]
     Indication: BACTERIAL DISEASE CARRIER
     Dosage: UNK
     Route: 042
     Dates: end: 20050401
  23. BACTRIM [Concomitant]
     Indication: BACTERIAL DISEASE CARRIER
     Dosage: UNK
     Dates: end: 20050401

REACTIONS (13)
  - STRESS [None]
  - MULTI-ORGAN FAILURE [None]
  - RENAL IMPAIRMENT [None]
  - FEAR [None]
  - PAIN [None]
  - ANHEDONIA [None]
  - DEATH [None]
  - RENAL INJURY [None]
  - ANXIETY [None]
  - INJURY [None]
  - EMOTIONAL DISTRESS [None]
  - UNEVALUABLE EVENT [None]
  - RENAL FAILURE [None]
